FAERS Safety Report 7337290-1 (Version None)
Quarter: 2011Q1

REPORT INFORMATION
  Report Type: 
  Country: None (occurrence: None)
  Receive Date: 20110308
  Receipt Date: 20110225
  Transmission Date: 20110831
  Serious: Yes (Other)
  Sender: FDA-Public Use
  Company Number: US-SANOFI-AVENTIS-2011SA012824

PATIENT
  Age: 79 Year
  Sex: Female

DRUGS (2)
  1. LOVENOX [Suspect]
     Indication: COLONOSCOPY
     Route: 065
     Dates: start: 20110225
  2. ALL OTHER THERAPEUTIC PRODUCTS [Concomitant]

REACTIONS (3)
  - PANIC ATTACK [None]
  - NAUSEA [None]
  - BURNING SENSATION [None]
